FAERS Safety Report 7318997-9 (Version None)
Quarter: 2011Q1

REPORT INFORMATION
  Report Type: 
  Country: None (occurrence: None)
  Receive Date: 20110216
  Receipt Date: 20110207
  Transmission Date: 20110831
  Serious: Yes (Other)
  Sender: FDA-Public Use
  Company Number: 201006IM001207

PATIENT
  Age: 54 Year
  Sex: Female

DRUGS (1)
  1. IMMUKIN [Suspect]
     Indication: IDIOPATHIC PULMONARY FIBROSIS
     Dosage: 50 UG/M2, THREE TIMES A WEEK, SUBCUTANEOUS
     Route: 058

REACTIONS (3)
  - NEPHROTIC SYNDROME [None]
  - RENAL FAILURE [None]
  - FOCAL SEGMENTAL GLOMERULOSCLEROSIS [None]
